FAERS Safety Report 17065940 (Version 5)
Quarter: 2020Q3

REPORT INFORMATION
  Report Type: Spontaneous
  Country: US (occurrence: US)
  Receive Date: 20191122
  Receipt Date: 20200701
  Transmission Date: 20201102
  Serious: Yes (Other)
  Sender: FDA-Public Use
  Company Number: US-BAYER-2019-206596

PATIENT
  Age: 29 Year
  Sex: Female
  Weight: 85.71 kg

DRUGS (2)
  1. MIRENA [Suspect]
     Active Substance: LEVONORGESTREL
     Indication: CONTRACEPTION
     Dosage: 20 MCG/24HR, CONTINUOUSLY
     Route: 015
     Dates: end: 20191117
  2. BUPIVACAINE HYDROCHLORIDE. [Concomitant]
     Active Substance: BUPIVACAINE HYDROCHLORIDE
     Dosage: UNK
     Dates: start: 20191107, end: 20191107

REACTIONS (4)
  - Device breakage [Recovered/Resolved]
  - Complication of device removal [Recovered/Resolved]
  - Device use issue [None]
  - Embedded device [Recovered/Resolved]

NARRATIVE: CASE EVENT DATE: 20191106
